FAERS Safety Report 16315588 (Version 3)
Quarter: 2021Q3

REPORT INFORMATION
  Report Type: Spontaneous
  Country: US (occurrence: US)
  Receive Date: 20190515
  Receipt Date: 20210920
  Transmission Date: 20211014
  Serious: Yes (Congenital Anomaly, Other)
  Sender: FDA-Public Use
  Company Number: US-GILEAD-2019-0407025

PATIENT
  Age: 12 Month
  Sex: Male
  Weight: 11.28 kg

DRUGS (16)
  1. ROTAVIRUS VACCINE [Concomitant]
     Active Substance: HUMAN ROTAVIRUS A
  2. VITAMIN K [Concomitant]
     Active Substance: PHYTONADIONE
  3. AMOXICILLIN. [Concomitant]
     Active Substance: AMOXICILLIN
  4. PNEUMOCOCCAL CONJUGATE VACCINE [Concomitant]
     Active Substance: PNEUMOCOCCAL VACCINE POLYVALENT
  5. SOVALDI [Suspect]
     Active Substance: SOFOSBUVIR
     Indication: EXPOSURE VIA BODY FLUID
     Route: 050
  6. RIBAVIRIN. [Suspect]
     Active Substance: RIBAVIRIN
     Indication: EXPOSURE VIA BODY FLUID
     Route: 050
  7. DECADRON [Concomitant]
     Active Substance: DEXAMETHASONE
  8. ZANTAC [Concomitant]
     Active Substance: RANITIDINE HYDROCHLORIDE
  9. IBUPROFEN. [Concomitant]
     Active Substance: IBUPROFEN
  10. SIMETHICONE (DIMETHICONE) [Concomitant]
     Active Substance: DIMETHICONE
  11. ACETAMINOPHEN. [Concomitant]
     Active Substance: ACETAMINOPHEN
  12. LURIDE [Concomitant]
     Active Substance: SODIUM FLUORIDE
  13. PEGINTERFERON ALFA?2B [Suspect]
     Active Substance: PEGINTERFERON ALFA-2B
     Indication: EXPOSURE VIA BODY FLUID
     Route: 050
  14. TRI VI SOL [Concomitant]
  15. HEPATITIS B VACCINE [Concomitant]
     Active Substance: HEPATITIS B VIRUS VACCINE
  16. HYTONE [Concomitant]
     Active Substance: HYDROCORTISONE

REACTIONS (74)
  - Aorta hypoplasia [Unknown]
  - Vomiting [Unknown]
  - Pyrexia [Unknown]
  - Pyrexia [Unknown]
  - Conjunctivitis viral [Unknown]
  - Cough [Unknown]
  - Cough [Unknown]
  - Flushing [Unknown]
  - Decreased activity [Unknown]
  - Gastrooesophageal reflux disease [Unknown]
  - Insomnia [Unknown]
  - Tongue disorder [Unknown]
  - Wheezing [Unknown]
  - Lung infiltration [Unknown]
  - Pyrexia [Unknown]
  - Ear pain [Unknown]
  - Teething [Unknown]
  - Teething [Unknown]
  - Weight gain poor [Unknown]
  - Ear discomfort [Unknown]
  - Pyrexia [Unknown]
  - Cough [Unknown]
  - Swollen tongue [Unknown]
  - Dyspnoea [Unknown]
  - Eye discharge [Unknown]
  - Foetal exposure during pregnancy [Unknown]
  - Aorta hypoplasia [Unknown]
  - Tympanic membrane hyperaemia [Unknown]
  - Rhinorrhoea [Unknown]
  - Irritability [Unknown]
  - Cough [Unknown]
  - Constipation [Unknown]
  - Lymphadenopathy [Unknown]
  - Constipation [Unknown]
  - Stridor [Unknown]
  - Vomiting [Unknown]
  - Decreased appetite [Unknown]
  - Ear infection [Unknown]
  - Otitis media acute [Unknown]
  - Drooling [Unknown]
  - Weight decreased [Unknown]
  - Upper respiratory tract infection [Unknown]
  - Upper respiratory tract infection [Unknown]
  - Teething [Unknown]
  - Eating disorder [Unknown]
  - Jaundice neonatal [Unknown]
  - Atrial septal defect [Recovered/Resolved]
  - Pharyngeal erythema [Unknown]
  - Chest X-ray abnormal [Unknown]
  - Abdominal pain [Unknown]
  - Erythema [Unknown]
  - Dermatitis diaper [Unknown]
  - Sneezing [Unknown]
  - Syncope [Unknown]
  - Tympanic membrane hyperaemia [Unknown]
  - Tympanic membrane hyperaemia [Unknown]
  - Somnolence [Unknown]
  - Nasal congestion [Unknown]
  - Rhinorrhoea [Unknown]
  - Irritability [Unknown]
  - Drooling [Unknown]
  - Infection [Unknown]
  - Decreased activity [Unknown]
  - Gastrooesophageal reflux disease [Unknown]
  - Eating disorder [Unknown]
  - Physical examination abnormal [Unknown]
  - Candida nappy rash [Unknown]
  - Croup infectious [Unknown]
  - Pyrexia [Unknown]
  - Nasal congestion [Unknown]
  - Diarrhoea [Unknown]
  - Teething [Unknown]
  - Viral infection [Unknown]
  - Dysphonia [Unknown]

NARRATIVE: CASE EVENT DATE: 20150325
